FAERS Safety Report 6166096-4 (Version None)
Quarter: 2009Q2

REPORT INFORMATION
  Report Type: 
  Country: None (occurrence: None)
  Receive Date: 20090424
  Receipt Date: 20090421
  Transmission Date: 20091009
  Serious: Yes (Other)
  Sender: FDA-Public Use
  Company Number: IN-JNJFOC-20090405007

PATIENT
  Age: 24 Year
  Sex: Male

DRUGS (3)
  1. RISPERIDONE [Suspect]
     Indication: TOURETTE'S DISORDER
     Dosage: WITH DINNER
     Route: 048
  2. FLUOXETINE [Suspect]
  3. FLUOXETINE [Suspect]
     Indication: DRUG USE FOR UNKNOWN INDICATION

REACTIONS (4)
  - OFF LABEL USE [None]
  - TARDIVE DYSKINESIA [None]
  - THERAPEUTIC RESPONSE UNEXPECTED [None]
  - TOURETTE'S DISORDER [None]
